FAERS Safety Report 20893604 (Version 1)
Quarter: 2022Q2

REPORT INFORMATION
  Report Type: Spontaneous
  Country: JP (occurrence: JP)
  Receive Date: 20220531
  Receipt Date: 20220531
  Transmission Date: 20220721
  Serious: Yes (Other)
  Sender: FDA-Public Use
  Company Number: JP-ORGANON-O2205JPN000289J

PATIENT
  Sex: Female

DRUGS (1)
  1. ALENDRONATE SODIUM [Suspect]
     Active Substance: ALENDRONATE SODIUM
     Dosage: UNK
     Route: 048
     Dates: start: 2021

REACTIONS (7)
  - Altered state of consciousness [Unknown]
  - Laboratory test abnormal [Unknown]
  - Stenosis [Unknown]
  - Limb discomfort [Unknown]
  - Arthralgia [Recovered/Resolved]
  - Chest discomfort [Unknown]
  - Palpitations [Unknown]
